FAERS Safety Report 16639944 (Version 1)
Quarter: 2019Q3

REPORT INFORMATION
  Report Type: Spontaneous
  Country: GB (occurrence: GB)
  Receive Date: 20190727
  Receipt Date: 20190727
  Transmission Date: 20191004
  Serious: Yes (Other)
  Sender: FDA-Public Use
  Company Number: GB-ACCORD-149240

PATIENT
  Age: 49 Year
  Sex: Female
  Weight: 60 kg

DRUGS (9)
  1. TOPIRAMATE. [Suspect]
     Active Substance: TOPIRAMATE
     Indication: PRODUCT USED FOR UNKNOWN INDICATION
     Dates: start: 20190508
  2. TRILEPTAL [Concomitant]
     Active Substance: OXCARBAZEPINE
     Dosage: MORNING AND ANOTHER TIME
     Dates: start: 20190123
  3. ZONISAMIDE. [Concomitant]
     Active Substance: ZONISAMIDE
     Dosage: INCREASE BY 25MG EVERY WEEK
     Dates: start: 20190320, end: 20190417
  4. ZONEGRAN [Concomitant]
     Active Substance: ZONISAMIDE
     Dosage: INCREASE BY 25MG EVERY WEEK
     Dates: start: 20190322, end: 20190419
  5. DIAZEPAM. [Concomitant]
     Active Substance: DIAZEPAM
     Dates: start: 20180514
  6. AZELAIC ACID. [Concomitant]
     Active Substance: AZELAIC ACID
     Dosage: APPLY AT NIGHT
     Dates: start: 20180514
  7. HYDROXOCOBALAMIN [Concomitant]
     Active Substance: HYDROXOCOBALAMIN
     Dosage: USE AS DIRECTED
     Dates: start: 20190311
  8. CANESTEN [Concomitant]
     Active Substance: CLOTRIMAZOLE
     Dosage: 1 AS DIRECTED
     Dates: start: 20190426, end: 20190427
  9. LACOSAMIDE. [Concomitant]
     Active Substance: LACOSAMIDE
     Dates: start: 20180718

REACTIONS (1)
  - Aphasia [Unknown]

NARRATIVE: CASE EVENT DATE: 20190508
